FAERS Safety Report 25638698 (Version 1)
Quarter: 2025Q3

REPORT INFORMATION
  Report Type: Spontaneous
  Country: US (occurrence: US)
  Receive Date: 20250804
  Receipt Date: 20250804
  Transmission Date: 20251021
  Serious: No
  Sender: AURINIA PHARMACEUTICALS
  Company Number: US-AURINIA PHARMACEUTICALS INC.-AUR-008465

PATIENT
  Age: 54 Year
  Sex: Female
  Weight: 47.166 kg

DRUGS (4)
  1. LUPKYNIS [Suspect]
     Active Substance: VOCLOSPORIN
     Indication: Lupus nephritis
     Dosage: 23.7 MILLIGRAM, BID
     Route: 048
     Dates: start: 20250511
  2. CLONIDINE [Suspect]
     Active Substance: CLONIDINE
     Indication: Blood pressure increased
  3. PREDNISONE [Concomitant]
     Active Substance: PREDNISONE
     Indication: Product used for unknown indication
  4. AMLODIPINE [Concomitant]
     Active Substance: AMLODIPINE BESYLATE
     Indication: Blood pressure increased

REACTIONS (11)
  - Bruxism [Unknown]
  - Snoring [Unknown]
  - Chest discomfort [Unknown]
  - Hypoaesthesia [Unknown]
  - Pain [Unknown]
  - Anxiety [Unknown]
  - Rash [Not Recovered/Not Resolved]
  - Palpitations [Not Recovered/Not Resolved]
  - Influenza [Unknown]
  - Somnolence [Not Recovered/Not Resolved]
  - Hypertension [Not Recovered/Not Resolved]

NARRATIVE: CASE EVENT DATE: 20250501
